FAERS Safety Report 20354375 (Version 2)
Quarter: 2022Q1

REPORT INFORMATION
  Report Type: Other
  Country: SE (occurrence: None)
  Receive Date: 20220120
  Receipt Date: 20220207
  Transmission Date: 20220424
  Serious: Yes (Hospitalization, Other)
  Sender: FDA-Public Use
  Company Number: SE-ROCHE-2999237

PATIENT
  Age: 75 Year
  Sex: Male
  Weight: 64 kg

DRUGS (10)
  1. GLOFITAMAB [Suspect]
     Active Substance: GLOFITAMAB
     Indication: Diffuse large B-cell lymphoma
     Route: 042
     Dates: start: 20211125
  2. TOCILIZUMAB [Suspect]
     Active Substance: TOCILIZUMAB
     Indication: Diffuse large B-cell lymphoma
     Route: 065
  3. OMEPRAZOLE [Concomitant]
     Active Substance: OMEPRAZOLE
     Indication: Prophylaxis
     Route: 048
  4. CRESTOR [Concomitant]
     Active Substance: ROSUVASTATIN CALCIUM
     Indication: Prophylaxis
     Route: 048
  5. PREDNISOLONE [Concomitant]
     Active Substance: PREDNISOLONE
  6. SALICYLIC ACID [Concomitant]
     Active Substance: SALICYLIC ACID
     Indication: Prophylaxis
     Route: 048
  7. SULFAMETHOXAZOLE\TRIMETHOPRIM [Concomitant]
     Active Substance: SULFAMETHOXAZOLE\TRIMETHOPRIM
     Indication: Prophylaxis
  8. VALACYCLOVIR HYDROCHLORIDE [Concomitant]
     Active Substance: VALACYCLOVIR HYDROCHLORIDE
     Indication: Prophylaxis
  9. ENTECAVIR [Concomitant]
     Active Substance: ENTECAVIR
     Indication: Prophylaxis
  10. TOCILIZUMAB [Concomitant]
     Active Substance: TOCILIZUMAB
     Indication: Cytokine release syndrome
     Route: 042
     Dates: start: 20211209, end: 20211209

REACTIONS (2)
  - Neoplasm progression [Unknown]
  - Pyrexia [Recovered/Resolved]

NARRATIVE: CASE EVENT DATE: 20211202
